FAERS Safety Report 9263140 (Version 1)
Quarter: 2013Q2

REPORT INFORMATION
  Report Type: Spontaneous
  Country: US (occurrence: None)
  Receive Date: 20130426
  Receipt Date: 20130426
  Transmission Date: 20140414
  Serious: Yes (Other)
  Sender: FDA-Public Use
  Company Number: None

PATIENT
  Age: 43 Year
  Sex: Female
  Weight: 74.84 kg

DRUGS (1)
  1. CYMBALTA [Suspect]
     Indication: PLANTAR FASCIITIS
     Dates: start: 20130321, end: 20130424

REACTIONS (8)
  - Hyperhidrosis [None]
  - Cold sweat [None]
  - Stomatitis [None]
  - Oropharyngeal pain [None]
  - Dizziness [None]
  - Vertigo [None]
  - Heart rate increased [None]
  - Loss of consciousness [None]
